FAERS Safety Report 10336622 (Version 1)
Quarter: 2014Q3

REPORT INFORMATION
  Report Type: Spontaneous
  Country: US (occurrence: US)
  Receive Date: 20140723
  Receipt Date: 20140723
  Transmission Date: 20150326
  Serious: No
  Sender: FDA-Public Use
  Company Number: US-BRISTOL-MYERS SQUIBB COMPANY-20570644

PATIENT
  Age: 75 Year
  Sex: Female
  Weight: 55.78 kg

DRUGS (1)
  1. WARFARIN SODIUM. [Suspect]
     Active Substance: WARFARIN SODIUM
     Indication: ATRIAL FIBRILLATION
     Dosage: 1DF:7.5MG 3TIMES A WEEK AND 5MG THE REMAINING DAYS OF THE WEEK
     Dates: start: 2012

REACTIONS (1)
  - International normalised ratio abnormal [Unknown]
